FAERS Safety Report 6803610-7 (Version None)
Quarter: 2010Q2

REPORT INFORMATION
  Report Type: 
  Country: None (occurrence: None)
  Receive Date: 20100628
  Receipt Date: 20100614
  Transmission Date: 20101027
  Serious: Yes (Hospitalization)
  Sender: FDA-Public Use
  Company Number: NSADSS2001036180

PATIENT
  Sex: Female
  Weight: 71 kg

DRUGS (17)
  1. REMICADE [Suspect]
     Indication: RHEUMATOID ARTHRITIS
     Route: 041
     Dates: start: 20010522
  2. REMICADE [Suspect]
     Route: 041
     Dates: start: 20010522
  3. REMICADE [Suspect]
     Route: 041
     Dates: start: 20010522
  4. REMICADE [Suspect]
     Route: 041
     Dates: start: 20010522
  5. REMICADE [Suspect]
     Route: 041
     Dates: start: 20010522
  6. REMICADE [Suspect]
     Route: 041
     Dates: start: 20010522
  7. PLACEBO [Suspect]
     Indication: PROPHYLAXIS
     Route: 065
     Dates: start: 20010522
  8. PLACEBO [Suspect]
     Route: 065
     Dates: start: 20010522
  9. PLACEBO [Suspect]
     Route: 065
     Dates: start: 20010522
  10. PLACEBO [Suspect]
     Route: 065
     Dates: start: 20010522
  11. METHOTREXATE [Concomitant]
     Route: 048
     Dates: start: 20010501
  12. CORTANCYL [Concomitant]
     Route: 048
  13. MOPRAL [Concomitant]
     Route: 048
     Dates: start: 20000501
  14. XANAX [Concomitant]
     Route: 048
     Dates: start: 20000501
  15. ZOLPIDEM [Concomitant]
     Route: 048
     Dates: start: 20000501
  16. BUSPAR [Concomitant]
  17. KETOPROFEN [Concomitant]
     Route: 048
     Dates: start: 20011001

REACTIONS (12)
  - ARTHRALGIA [None]
  - BACTERIAL INFECTION [None]
  - CANDIDIASIS [None]
  - CARDIAC MURMUR [None]
  - DISEASE PROGRESSION [None]
  - HELICOBACTER INFECTION [None]
  - INFLAMMATION [None]
  - LUNG INFILTRATION [None]
  - PNEUMONIA LEGIONELLA [None]
  - PYREXIA [None]
  - RED BLOOD CELL SEDIMENTATION RATE INCREASED [None]
  - THERAPEUTIC RESPONSE DECREASED [None]
